FAERS Safety Report 15109214 (Version 1)
Quarter: 2018Q3

REPORT INFORMATION
  Report Type: Report from Study
  Country: DE (occurrence: DE)
  Receive Date: 20180705
  Receipt Date: 20180705
  Transmission Date: 20181010
  Serious: Yes (Hospitalization, Other)
  Sender: FDA-Public Use
  Company Number: DE-TEVA-2018-DE-917738

PATIENT
  Age: 51 Year
  Sex: Female

DRUGS (1)
  1. COPAXONE [Suspect]
     Active Substance: GLATIRAMER ACETATE
     Indication: MULTIPLE SCLEROSIS
     Dates: start: 20170424, end: 20180227

REACTIONS (7)
  - Intestinal operation [Recovered/Resolved]
  - False negative investigation result [Unknown]
  - Ileostomy [Not Recovered/Not Resolved]
  - Volvulus [Recovered/Resolved]
  - Intestinal polyp [Recovered/Resolved]
  - Suture rupture [Recovering/Resolving]
  - Purulence [Recovering/Resolving]

NARRATIVE: CASE EVENT DATE: 201802
